FAERS Safety Report 8731461 (Version 1)
Quarter: 2020Q3

REPORT INFORMATION
  Report Type: Report from Study
  Country: US (occurrence: US)
  Receive Date: 20120820
  Receipt Date: 20120820
  Transmission Date: 20201105
  Serious: Yes (Hospitalization)
  Sender: FDA-Public Use
  Company Number: US-CELGENEUS-163-21880-12081621

PATIENT
  Age: 64 Year
  Sex: Male
  Weight: 87.7 kg

DRUGS (4)
  1. CEDIRANIB. [Suspect]
     Active Substance: CEDIRANIB
     Dosage: 30 MILLIGRAM
     Route: 048
     Dates: start: 20120618
  2. CEDIRANIB. [Suspect]
     Active Substance: CEDIRANIB
     Dosage: 30 MILLIGRAM
     Route: 048
     Dates: start: 20120716, end: 20120812
  3. REVLIMID [Suspect]
     Active Substance: LENALIDOMIDE
     Dosage: 15 MILLIGRAM
     Route: 048
     Dates: start: 20120618
  4. REVLIMID [Suspect]
     Active Substance: LENALIDOMIDE
     Dosage: 15 MILLIGRAM
     Route: 048
     Dates: start: 20120716, end: 20120805

REACTIONS (2)
  - Blood creatinine increased [Recovering/Resolving]
  - Hypercalcaemia [Recovering/Resolving]

NARRATIVE: CASE EVENT DATE: 20120813
